FAERS Safety Report 14996822 (Version 1)
Quarter: 2018Q2

REPORT INFORMATION
  Report Type: Spontaneous
  Country: US (occurrence: US)
  Receive Date: 20180611
  Receipt Date: 20180611
  Transmission Date: 20180711
  Serious: No
  Sender: FDA-Public Use
  Company Number: US-BEH-2018091466

PATIENT
  Sex: Male
  Weight: 129.25 kg

DRUGS (19)
  1. HAEGARDA [Suspect]
     Active Substance: HUMAN C1-ESTERASE INHIBITOR
     Indication: HEREDITARY ANGIOEDEMA
     Dosage: 6000 IU, BIW
     Route: 058
     Dates: start: 20180326
  2. CINRYZE [Concomitant]
     Active Substance: HUMAN C1-ESTERASE INHIBITOR
  3. OMEPRAZOLE. [Concomitant]
     Active Substance: OMEPRAZOLE
  4. EPINEPHRINE. [Concomitant]
     Active Substance: EPINEPHRINE
  5. HUMALOG [Concomitant]
     Active Substance: INSULIN LISPRO
  6. PROSCAR [Concomitant]
     Active Substance: FINASTERIDE
  7. NITROSTAT [Concomitant]
     Active Substance: NITROGLYCERIN
  8. GLIPIZIDE. [Concomitant]
     Active Substance: GLIPIZIDE
  9. WELLBUTRIN [Concomitant]
     Active Substance: BUPROPION HYDROCHLORIDE
  10. SPIRONOLACTONE. [Concomitant]
     Active Substance: SPIRONOLACTONE
  11. COREG [Concomitant]
     Active Substance: CARVEDILOL
  12. FLONASE [Concomitant]
     Active Substance: FLUTICASONE PROPIONATE
  13. OXYBUTYNIN. [Concomitant]
     Active Substance: OXYBUTYNIN CHLORIDE
  14. HAEGARDA [Suspect]
     Active Substance: HUMAN C1-ESTERASE INHIBITOR
     Indication: PROPHYLAXIS
  15. ASPIRIN. [Concomitant]
     Active Substance: ASPIRIN
  16. LEXAPRO [Concomitant]
     Active Substance: ESCITALOPRAM OXALATE
  17. LIPITOR [Concomitant]
     Active Substance: ATORVASTATIN CALCIUM
  18. LANTUS [Concomitant]
     Active Substance: INSULIN GLARGINE
  19. LASIX [Concomitant]
     Active Substance: FUROSEMIDE

REACTIONS (2)
  - Administration site rash [Unknown]
  - Insomnia [Unknown]
